FAERS Safety Report 8208574-X (Version None)
Quarter: 2012Q1

REPORT INFORMATION
  Report Type: 
  Country: None (occurrence: None)
  Receive Date: 20120314
  Receipt Date: 20120305
  Transmission Date: 20120608
  Serious: Yes (Hospitalization)
  Sender: FDA-Public Use
  Company Number: JP-GLAXOSMITHKLINE-B0568424A

PATIENT
  Sex: Male

DRUGS (14)
  1. ABILIFY [Concomitant]
     Indication: BIPOLAR I DISORDER
     Dosage: 12MG PER DAY
     Route: 048
     Dates: start: 20071215, end: 20090330
  2. LAMICTAL [Suspect]
     Dosage: 50MG PER DAY
     Route: 048
     Dates: start: 20090309, end: 20090309
  3. NITRAZEPAM [Concomitant]
     Indication: INSOMNIA
     Dosage: 5MG PER DAY
     Route: 048
     Dates: start: 20080901, end: 20090330
  4. VALPROATE SODIUM [Concomitant]
     Indication: BIPOLAR I DISORDER
     Dosage: 600MG PER DAY
     Route: 048
     Dates: start: 20070501, end: 20090330
  5. LITHIUM CARBONATE [Concomitant]
     Indication: BIPOLAR I DISORDER
     Dosage: 800MG PER DAY
     Route: 048
     Dates: start: 20080901, end: 20090330
  6. ZOLOFT [Concomitant]
     Indication: DEPRESSION
     Dosage: 100MG PER DAY
     Route: 048
     Dates: start: 20080901, end: 20090330
  7. ZOLOFT [Concomitant]
     Route: 048
     Dates: start: 20090402, end: 20090407
  8. LAMICTAL [Suspect]
     Indication: BIPOLAR I DISORDER
     Dosage: 25MG PER DAY
     Route: 048
     Dates: start: 20090204, end: 20090308
  9. LEXOTAN [Concomitant]
     Dosage: 5MG PER DAY
     Route: 048
     Dates: start: 20080901, end: 20090330
  10. NITRAZEPAM [Concomitant]
     Route: 048
     Dates: start: 20090410
  11. SEROQUEL [Concomitant]
     Indication: BIPOLAR I DISORDER
     Dosage: 100MG PER DAY
     Route: 048
     Dates: start: 20080901, end: 20090330
  12. LITHIUM CARBONATE [Concomitant]
     Route: 048
     Dates: start: 20090402
  13. SEROQUEL [Concomitant]
     Route: 048
     Dates: start: 20090403
  14. RISPERDAL [Concomitant]
     Route: 048
     Dates: start: 20090403

REACTIONS (33)
  - DRUG RASH WITH EOSINOPHILIA AND SYSTEMIC SYMPTOMS [None]
  - PORIOMANIA [None]
  - WITHDRAWAL SYNDROME [None]
  - OCULAR HYPERAEMIA [None]
  - HEPATIC FUNCTION ABNORMAL [None]
  - RASH GENERALISED [None]
  - PYREXIA [None]
  - MENTAL DISORDER [None]
  - CONJUNCTIVAL HYPERAEMIA [None]
  - PHARYNGEAL OEDEMA [None]
  - GENERALISED ERYTHEMA [None]
  - RESTLESSNESS [None]
  - OROPHARYNGEAL PAIN [None]
  - HUMAN HERPESVIRUS 6 INFECTION [None]
  - EYE PAIN [None]
  - CONFUSIONAL STATE [None]
  - DISORIENTATION [None]
  - LIP OEDEMA [None]
  - LACRIMAL DISORDER [None]
  - FACE OEDEMA [None]
  - HEPATIC ENZYME INCREASED [None]
  - LIVER FUNCTION TEST ABNORMAL [None]
  - DRY EYE [None]
  - MUSCLE SPASMS [None]
  - ALOPECIA [None]
  - DERMATITIS EXFOLIATIVE [None]
  - HALLUCINATION [None]
  - AGGRESSION [None]
  - ERYTHEMA [None]
  - WHITE BLOOD CELL COUNT DECREASED [None]
  - BLOOD IMMUNOGLOBULIN G INCREASED [None]
  - OEDEMA MUCOSAL [None]
  - LIP EROSION [None]
